FAERS Safety Report 6491182-9 (Version None)
Quarter: 2009Q4

REPORT INFORMATION
  Report Type: 
  Country: None (occurrence: None)
  Receive Date: 20091125
  Receipt Date: 20090601
  Transmission Date: 20100525
  Serious: Yes (Other)
  Sender: FDA-Public Use
  Company Number: 2009BH009344

PATIENT
  Age: 60 Year
  Sex: Male
  Weight: 101.4 kg

DRUGS (18)
  1. DIANEAL [Suspect]
     Indication: PERITONEAL DIALYSIS
     Dosage: 11.5 L; EVERY DAY; IP
     Route: 033
     Dates: start: 20080512
  2. DIANEAL [Suspect]
     Indication: PERITONEAL DIALYSIS
     Dosage: 2 L; IP
     Route: 033
     Dates: start: 20080512
  3. EXTRANEAL [Suspect]
     Indication: PERITONEAL DIALYSIS
     Dosage: 2 L; EVERY DAY; IP
     Route: 033
     Dates: start: 20080101
  4. CALCITRIOL [Concomitant]
  5. PHOSLO [Concomitant]
  6. FERROUS SULFATE TAB [Concomitant]
  7. NOVOLOG [Concomitant]
  8. LANTUS [Concomitant]
  9. LOVASTATIN [Concomitant]
  10. DULCOLAX [Concomitant]
  11. LOVAZA [Concomitant]
  12. LASIX [Concomitant]
  13. GLIPIZIDE [Concomitant]
  14. EPOGEN [Concomitant]
  15. METOPROLOL [Concomitant]
  16. NIFEDIPINE [Concomitant]
  17. ACTOS [Concomitant]
  18. ASPIRIN [Concomitant]

REACTIONS (6)
  - DISCOMFORT [None]
  - MALAISE [None]
  - MUSCLE SPASMS [None]
  - PERITONEAL DIALYSIS COMPLICATION [None]
  - PERITONITIS BACTERIAL [None]
  - VOMITING [None]
